FAERS Safety Report 6060671-3 (Version None)
Quarter: 2009Q1

REPORT INFORMATION
  Report Type: 
  Country: None (occurrence: None)
  Receive Date: 20090130
  Receipt Date: 20090130
  Transmission Date: 20090719
  Serious: Yes (Life-Threatening)
  Sender: FDA-Public Use
  Company Number: None

PATIENT

DRUGS (2)
  1. FLAGYL [Suspect]
     Indication: DIVERTICULITIS
     Dosage: 500 MG 3 TIMES DAILY ORAL
     Route: 048
     Dates: start: 20081104, end: 20081109
  2. FLAGYL [Suspect]
     Indication: INFECTION
     Dosage: 500 MG 3 TIMES DAILY ORAL
     Route: 048
     Dates: start: 20081104, end: 20081109

REACTIONS (7)
  - ABDOMINAL PAIN UPPER [None]
  - CHROMATURIA [None]
  - CONFUSIONAL STATE [None]
  - COORDINATION ABNORMAL [None]
  - DYSPEPSIA [None]
  - MALAISE [None]
  - VISUAL IMPAIRMENT [None]
